FAERS Safety Report 26136636 (Version 2)
Quarter: 2025Q4

REPORT INFORMATION
  Report Type: Spontaneous
  Country: EU (occurrence: EU)
  Receive Date: 20251209
  Receipt Date: 20251212
  Transmission Date: 20260117
  Serious: Yes (Disabling, Other)
  Sender: JOHNSON AND JOHNSON
  Company Number: EU-JNJFOC-20251209383

PATIENT
  Age: 32 Year
  Sex: Male

DRUGS (49)
  1. HALOPERIDOL [Suspect]
     Active Substance: HALOPERIDOL
     Indication: Bipolar I disorder
  2. HALOPERIDOL [Suspect]
     Active Substance: HALOPERIDOL
     Indication: Autism spectrum disorder
  3. HALOPERIDOL [Suspect]
     Active Substance: HALOPERIDOL
     Indication: Substance use disorder
  4. HALOPERIDOL [Suspect]
     Active Substance: HALOPERIDOL
     Indication: Mania
  5. RISPERDAL [Suspect]
     Active Substance: RISPERIDONE
     Indication: Bipolar I disorder
  6. RISPERDAL [Suspect]
     Active Substance: RISPERIDONE
     Indication: Autism spectrum disorder
  7. RISPERDAL [Suspect]
     Active Substance: RISPERIDONE
     Indication: Substance use disorder
  8. RISPERDAL [Suspect]
     Active Substance: RISPERIDONE
     Indication: Mania
  9. RISPERDAL [Suspect]
     Active Substance: RISPERIDONE
  10. RISPERDAL [Suspect]
     Active Substance: RISPERIDONE
  11. OLANZAPINE [Suspect]
     Active Substance: OLANZAPINE
     Indication: Bipolar I disorder
  12. OLANZAPINE [Suspect]
     Active Substance: OLANZAPINE
     Indication: Autism spectrum disorder
  13. OLANZAPINE [Suspect]
     Active Substance: OLANZAPINE
     Indication: Substance use disorder
  14. OLANZAPINE [Suspect]
     Active Substance: OLANZAPINE
     Indication: Mania
  15. MIDOMAFETAMINE [Suspect]
     Active Substance: MIDOMAFETAMINE
     Indication: Mania
  16. VALPROIC ACID [Suspect]
     Active Substance: VALPROIC ACID
     Indication: Bipolar disorder
  17. VALPROIC ACID [Suspect]
     Active Substance: VALPROIC ACID
     Indication: Autism spectrum disorder
  18. VALPROIC ACID [Suspect]
     Active Substance: VALPROIC ACID
     Indication: Substance use disorder
  19. VALPROIC ACID [Suspect]
     Active Substance: VALPROIC ACID
     Indication: Mania
  20. VENLAFAXINE [Suspect]
     Active Substance: VENLAFAXINE HYDROCHLORIDE
     Indication: Bipolar disorder
  21. VENLAFAXINE [Suspect]
     Active Substance: VENLAFAXINE HYDROCHLORIDE
     Indication: Autism spectrum disorder
  22. VENLAFAXINE [Suspect]
     Active Substance: VENLAFAXINE HYDROCHLORIDE
     Indication: Substance use disorder
  23. VENLAFAXINE [Suspect]
     Active Substance: VENLAFAXINE HYDROCHLORIDE
     Indication: Mania
  24. PIPAMPERONE [Suspect]
     Active Substance: PIPAMPERONE
     Indication: Bipolar disorder
  25. PIPAMPERONE [Suspect]
     Active Substance: PIPAMPERONE
     Indication: Autism spectrum disorder
  26. PIPAMPERONE [Suspect]
     Active Substance: PIPAMPERONE
     Indication: Substance use disorder
  27. PIPAMPERONE [Suspect]
     Active Substance: PIPAMPERONE
     Indication: Mania
  28. QUETIAPINE [Suspect]
     Active Substance: QUETIAPINE
     Indication: Bipolar I disorder
  29. QUETIAPINE [Suspect]
     Active Substance: QUETIAPINE
     Indication: Autism spectrum disorder
  30. QUETIAPINE [Suspect]
     Active Substance: QUETIAPINE
     Indication: Substance use disorder
  31. QUETIAPINE [Suspect]
     Active Substance: QUETIAPINE
     Indication: Mania
  32. MIRTAZAPINE [Suspect]
     Active Substance: MIRTAZAPINE
     Indication: Bipolar I disorder
  33. MIRTAZAPINE [Suspect]
     Active Substance: MIRTAZAPINE
     Indication: Autism spectrum disorder
  34. MIRTAZAPINE [Suspect]
     Active Substance: MIRTAZAPINE
     Indication: Substance use disorder
  35. MIRTAZAPINE [Suspect]
     Active Substance: MIRTAZAPINE
     Indication: Mania
  36. LITHIUM [Suspect]
     Active Substance: LITHIUM
     Indication: Bipolar I disorder
  37. LITHIUM [Suspect]
     Active Substance: LITHIUM
     Indication: Autism spectrum disorder
  38. LITHIUM [Suspect]
     Active Substance: LITHIUM
     Indication: Substance use disorder
  39. LITHIUM [Suspect]
     Active Substance: LITHIUM
     Indication: Mania
  40. LAMOTRIGINE [Suspect]
     Active Substance: LAMOTRIGINE
     Indication: Bipolar I disorder
  41. LAMOTRIGINE [Suspect]
     Active Substance: LAMOTRIGINE
     Indication: Autism spectrum disorder
  42. LAMOTRIGINE [Suspect]
     Active Substance: LAMOTRIGINE
     Indication: Substance use disorder
  43. LAMOTRIGINE [Suspect]
     Active Substance: LAMOTRIGINE
     Indication: Mania
  44. ARIPIPRAZOLE [Suspect]
     Active Substance: ARIPIPRAZOLE
     Indication: Mania
  45. CLONAZEPAM [Suspect]
     Active Substance: CLONAZEPAM
     Indication: Product used for unknown indication
  46. PENFLURIDOL [Suspect]
     Active Substance: PENFLURIDOL
     Indication: Bipolar I disorder
  47. PENFLURIDOL [Suspect]
     Active Substance: PENFLURIDOL
     Indication: Autism spectrum disorder
  48. PENFLURIDOL [Suspect]
     Active Substance: PENFLURIDOL
     Indication: Substance use disorder
  49. PENFLURIDOL [Suspect]
     Active Substance: PENFLURIDOL
     Indication: Mania

REACTIONS (9)
  - Paroxysmal perceptual alteration [Recovered/Resolved]
  - Vision blurred [Recovered/Resolved]
  - Oscillopsia [Recovered/Resolved]
  - Photopsia [Recovered/Resolved]
  - Visual impairment [Recovered/Resolved]
  - Anxiety [Recovered/Resolved]
  - Suicidal ideation [Unknown]
  - Off label use [Not Recovered/Not Resolved]
  - Hyperventilation [Unknown]
